FAERS Safety Report 8114739-8 (Version None)
Quarter: 2012Q1

REPORT INFORMATION
  Report Type: 
  Country: None (occurrence: None)
  Receive Date: 20120206
  Receipt Date: 20120105
  Transmission Date: 20120608
  Serious: No
  Sender: FDA-Public Use
  Company Number: US-MYLANLABS-2012S1000555

PATIENT
  Sex: Female

DRUGS (1)
  1. MORPHINE SULFATE [Suspect]

REACTIONS (2)
  - HEADACHE [None]
  - DYSPEPSIA [None]
